FAERS Safety Report 18468677 (Version 1)
Quarter: 2020Q4

REPORT INFORMATION
  Report Type: Spontaneous
  Country: SE (occurrence: SE)
  Receive Date: 20201105
  Receipt Date: 20201105
  Transmission Date: 20210114
  Serious: Yes (Other)
  Sender: FDA-Public Use
  Company Number: NVSC2020SE294996

PATIENT
  Sex: Male

DRUGS (2)
  1. TOBI PODHALER [Suspect]
     Active Substance: TOBRAMYCIN
     Indication: PSEUDOMONAS INFECTION
     Dosage: 2 DF, BID
     Route: 065
     Dates: start: 2020
  2. COLOBREATHE [Concomitant]
     Active Substance: COLISTIMETHATE SODIUM
     Indication: GOOD SYNDROME
     Dosage: UNK
     Route: 065

REACTIONS (2)
  - Renal failure [Unknown]
  - Drug level increased [Recovering/Resolving]

NARRATIVE: CASE EVENT DATE: 202010
